FAERS Safety Report 6812553-4 (Version None)
Quarter: 2010Q3

REPORT INFORMATION
  Report Type: 
  Country: None (occurrence: None)
  Receive Date: 20100701
  Receipt Date: 20100622
  Transmission Date: 20110219
  Serious: Yes (Other)
  Sender: FDA-Public Use
  Company Number: US-PFIZER INC-2010078564

PATIENT
  Sex: Male
  Weight: 90.703 kg

DRUGS (10)
  1. LIPITOR [Suspect]
     Dosage: 80 MG, 1X/DAY
     Route: 048
     Dates: start: 20100201
  2. DEPAKOTE [Interacting]
     Indication: CONVULSION
     Dosage: 250 MG, 2X/DAY
     Route: 048
     Dates: start: 19870101
  3. DEPAKOTE [Interacting]
     Dosage: 500 MG, 2X/DAY
     Route: 048
  4. DEPAKOTE [Interacting]
     Dosage: 500 MG, 3X/DAY
     Route: 048
  5. DEPAKOTE [Interacting]
     Dosage: 750 MG, 3X/DAY
     Route: 048
     Dates: start: 20071001
  6. RANEXA [Concomitant]
     Dosage: 500 MG, 1X/DAY
  7. METOPROLOL [Concomitant]
     Dosage: 50 MG, 2X/DAY
  8. FAMOTIDINE [Concomitant]
     Dosage: 40 MG, 1X/DAY
  9. PANTOPRAZOLE [Concomitant]
     Dosage: 40 MG, 1X/DAY
  10. ISOSORBIDE [Concomitant]
     Dosage: 30 MG, 1X/DAY

REACTIONS (4)
  - CONVULSION [None]
  - DRUG INTERACTION [None]
  - DRUG LEVEL DECREASED [None]
  - LOSS OF CONSCIOUSNESS [None]
